FAERS Safety Report 7622076-0 (Version None)
Quarter: 2011Q3

REPORT INFORMATION
  Report Type: 
  Country: None (occurrence: None)
  Receive Date: 20110720
  Receipt Date: 20101213
  Transmission Date: 20111222
  Serious: Yes (Hospitalization)
  Sender: FDA-Public Use
  Company Number: US-BAYER-2011-025283

PATIENT
  Age: 28 Year
  Sex: Female
  Weight: 104 kg

DRUGS (5)
  1. IBUPROFEN (ADVIL) [Concomitant]
  2. DEXAMETHASONE [Concomitant]
  3. DROSPIRENONE AND ETHINYL ESTRADIOL [Suspect]
     Indication: PRODUCT USED FOR UNKNOWN INDICATION
     Dosage: UNK
     Dates: start: 20080101, end: 20100301
  4. YAZ [Suspect]
     Indication: PRODUCT USED FOR UNKNOWN INDICATION
     Dosage: UNK
     Route: 048
     Dates: start: 20080101, end: 20100301
  5. YASMIN [Suspect]
     Indication: PRODUCT USED FOR UNKNOWN INDICATION
     Dosage: UNK
     Route: 048
     Dates: start: 20080101

REACTIONS (5)
  - CHOLECYSTITIS ACUTE [None]
  - CHOLELITHIASIS [None]
  - CHOLECYSTECTOMY [None]
  - BACK PAIN [None]
  - ABDOMINAL PAIN [None]
